FAERS Safety Report 21562156 (Version 1)
Quarter: 2022Q4

REPORT INFORMATION
  Report Type: Report from Study
  Country: IT (occurrence: IT)
  Receive Date: 20221107
  Receipt Date: 20221107
  Transmission Date: 20230113
  Serious: No
  Sender: FDA-Public Use
  Company Number: IT-GSK-IT2022GSK161900

PATIENT

DRUGS (1)
  1. SOTROVIMAB [Suspect]
     Active Substance: SOTROVIMAB
     Indication: COVID-19
     Dosage: UNK
     Route: 042

REACTIONS (4)
  - Asthenia [Recovering/Resolving]
  - Illness [Recovering/Resolving]
  - Pallor [Recovering/Resolving]
  - Drug hypersensitivity [Recovering/Resolving]
